FAERS Safety Report 9958490 (Version 1)
Quarter: 2014Q1

REPORT INFORMATION
  Report Type: Report from Study
  Country: US (occurrence: US)
  Receive Date: 20140305
  Receipt Date: 20140305
  Transmission Date: 20141002
  Serious: Yes (Other)
  Sender: FDA-Public Use
  Company Number: US-ROCHE-1341204

PATIENT
  Age: 53 Year
  Sex: Female

DRUGS (18)
  1. LUCENTIS [Suspect]
     Indication: RETINAL OEDEMA
     Route: 050
  2. LUCENTIS [Suspect]
     Indication: DIABETIC RETINAL OEDEMA
  3. LUCENTIS [Suspect]
     Indication: DIABETIC RETINOPATHY
  4. LUCENTIS [Suspect]
     Indication: MACULAR OEDEMA
  5. AVASTIN [Suspect]
     Indication: PRODUCT USED FOR UNKNOWN INDICATION
     Dosage: NUMBER 7 OD
     Route: 065
     Dates: start: 20101221
  6. AVASTIN [Suspect]
     Dosage: #6 OS
     Route: 065
     Dates: start: 20110524, end: 20110524
  7. ASPIRIN [Concomitant]
     Route: 048
  8. ERGOCALCIFEROL [Concomitant]
     Route: 048
  9. FISH OIL [Concomitant]
     Dosage: 2 TABS BID
     Route: 048
  10. IBUPROFEN [Concomitant]
     Dosage: 1 TABLET Q 6HRS AS NEEDED
     Route: 048
  11. NOVOLOG [Concomitant]
     Indication: TYPE 1 DIABETES MELLITUS
     Dosage: 25 UNITS AT BK,15 UNITS LUNCH, AND 20 UNITS DINNER
     Route: 058
  12. NOVOLOG [Concomitant]
     Dosage: 85 UNITS A DAY
     Route: 058
  13. LIRAGLUTIDE [Concomitant]
     Indication: TYPE 2 DIABETES MELLITUS
     Route: 058
  14. LISINOPRIL [Concomitant]
     Dosage: 1 TAB ONCE DAILY
     Route: 048
  15. TRIAMCINOLONE ACETONIDE [Concomitant]
     Dosage: APPLY THIN FILM TO AFFECTED AREAS
     Route: 065
     Dates: end: 20120827
  16. LANTUS [Concomitant]
     Dosage: 70 UNITS AT BEDTIME
     Route: 058
  17. METFORMIN [Concomitant]
     Route: 048
  18. CLINDAMYCIN [Concomitant]
     Route: 048
     Dates: end: 20110802

REACTIONS (14)
  - Cystoid macular oedema [Unknown]
  - Blood glucose increased [Unknown]
  - Cataract nuclear [Unknown]
  - Aneurysm [Unknown]
  - Vitreous haemorrhage [Unknown]
  - Visual acuity reduced [Unknown]
  - Vision blurred [Unknown]
  - Upper limb fracture [Unknown]
  - Macular fibrosis [Unknown]
  - Hypermetropia [Unknown]
  - Intraocular pressure increased [Unknown]
  - Skin candida [Unknown]
  - Combined hyperlipidaemia [Unknown]
  - Off label use [Unknown]
